FAERS Safety Report 5633161-7 (Version None)
Quarter: 2008Q1

REPORT INFORMATION
  Report Type: 
  Country: None (occurrence: None)
  Receive Date: 20080221
  Receipt Date: 20070410
  Transmission Date: 20080703
  Serious: Yes (Hospitalization, Other)
  Sender: FDA-Public Use
  Company Number: US-ASTRAZENECA-2007UW02051

PATIENT
  Sex: Male
  Weight: 130.5 kg

DRUGS (5)
  1. SEROQUEL [Suspect]
     Indication: DEPRESSION
     Route: 048
     Dates: start: 19990101, end: 20060101
  2. SEROQUEL [Suspect]
     Indication: INSOMNIA
     Route: 048
     Dates: start: 19990101, end: 20060101
  3. CLOZARIL [Concomitant]
  4. RISPERDAL [Concomitant]
     Dates: start: 20000101, end: 20020101
  5. ZYPREXA/SYMBYAX (OLANZAPINE) [Concomitant]
     Dates: start: 20000801

REACTIONS (10)
  - BLOOD CHOLESTEROL INCREASED [None]
  - BLOOD GLUCOSE INCREASED [None]
  - FURUNCLE [None]
  - NAUSEA [None]
  - NEUROPATHY PERIPHERAL [None]
  - PANCREATITIS [None]
  - TYPE 1 DIABETES MELLITUS [None]
  - TYPE 2 DIABETES MELLITUS [None]
  - VOMITING [None]
  - WEIGHT INCREASED [None]
